FAERS Safety Report 13766407 (Version 5)
Quarter: 2017Q4

REPORT INFORMATION
  Report Type: Spontaneous
  Country: JP (occurrence: JP)
  Receive Date: 20170719
  Receipt Date: 20171107
  Transmission Date: 20180320
  Serious: Yes (Hospitalization)
  Sender: FDA-Public Use
  Company Number: JP-PFIZER INC-2017298896

PATIENT
  Age: 80 Year
  Sex: Female
  Weight: 52 kg

DRUGS (9)
  1. PRIMPERAN [Concomitant]
     Active Substance: METOCLOPRAMIDE HYDROCHLORIDE
     Dosage: 5 MG, 2X/DAY
     Route: 048
  2. LASIX [Suspect]
     Active Substance: FUROSEMIDE
     Dosage: 40 MG, 1X/DAY
     Route: 048
  3. OPALMON [Concomitant]
     Active Substance: LIMAPROST
     Indication: LUMBAR SPINAL STENOSIS
     Dosage: 5 UG, 3X/DAY
     Route: 048
  4. LYRICA [Suspect]
     Active Substance: PREGABALIN
     Indication: LUMBAR SPINAL STENOSIS
     Dosage: 75 MG, 2X/DAY
     Route: 048
     Dates: start: 2012
  5. AMLODIN [Suspect]
     Active Substance: AMLODIPINE BESYLATE
     Dosage: 10 MG, 1X/DAY
     Route: 048
  6. MIYA-BM [Concomitant]
     Active Substance: CLOSTRIDIUM BUTYRICUM SPORES STRAIN M-55
     Dosage: 20 MG, 3X/DAY
     Route: 048
  7. HERBAL NOS [Concomitant]
     Active Substance: HERBALS
     Dosage: 2.5 G, 3X/DAY
     Route: 048
  8. BASEN /01290601/ [Suspect]
     Active Substance: VOGLIBOSE
     Dosage: 0.3 MG, 3X/DAY
     Route: 048
  9. PURSENNID /00571902/ [Concomitant]
     Active Substance: SENNOSIDES A AND B
     Dosage: 12 MG, 1X/DAY
     Route: 048

REACTIONS (5)
  - Hypokalaemia [Recovered/Resolved]
  - Malaise [Recovered/Resolved]
  - Abdominal symptom [Recovered/Resolved]
  - Asthenia [Recovered/Resolved]
  - Oedema peripheral [Recovered/Resolved]
